FAERS Safety Report 6076515-X (Version None)
Quarter: 2009Q1

REPORT INFORMATION
  Report Type: 
  Country: None (occurrence: None)
  Receive Date: 20090209
  Receipt Date: 20090121
  Transmission Date: 20090719
  Serious: Yes (Life-Threatening, Hospitalization)
  Sender: FDA-Public Use
  Company Number: PHFR2006GB00899

PATIENT
  Age: 14 Year
  Sex: Female
  Weight: 40 kg

DRUGS (3)
  1. DICLOFENAC POTASSIUM [Suspect]
     Dosage: 75 MG X14 TABLETS OVERDOSE, ORAL
     Route: 048
  2. METFORMIN HCL [Suspect]
     Dosage: 500 MG X126 TABLETS OVERDOSE, ORAL
     Route: 048
  3. ATENOLOL [Suspect]
     Dosage: 50 MG X 28 TABLETS OVERDOSE, ORAL
     Route: 048

REACTIONS (8)
  - DEPRESSED LEVEL OF CONSCIOUSNESS [None]
  - GLASGOW COMA SCALE ABNORMAL [None]
  - HYPOGLYCAEMIA [None]
  - HYPOTENSION [None]
  - LACTIC ACIDOSIS [None]
  - METABOLIC ACIDOSIS [None]
  - OVERDOSE [None]
  - RESPIRATORY RATE INCREASED [None]
